FAERS Safety Report 20832812 (Version 1)
Quarter: 2022Q2

REPORT INFORMATION
  Report Type: Spontaneous
  Country: US (occurrence: US)
  Receive Date: 20220516
  Receipt Date: 20220516
  Transmission Date: 20220721
  Serious: No
  Sender: FDA-Public Use
  Company Number: US-TG THERAPEUTICS INC.-TGT002514

PATIENT
  Sex: Male

DRUGS (1)
  1. UKONIQ [Suspect]
     Active Substance: UMBRALISIB TOSYLATE
     Indication: Follicular lymphoma
     Dosage: 800 MILLIGRAM, QD
     Route: 048

REACTIONS (1)
  - Diarrhoea [Unknown]

NARRATIVE: CASE EVENT DATE: 20220301
